FAERS Safety Report 17237565 (Version 1)
Quarter: 2020Q1

REPORT INFORMATION
  Report Type: Spontaneous
  Country: EG (occurrence: EG)
  Receive Date: 20200106
  Receipt Date: 20200106
  Transmission Date: 20200409
  Serious: Yes (Other)
  Sender: FDA-Public Use
  Company Number: EG-CELLTRION-2019-EG-000014

PATIENT
  Age: 34 Year
  Sex: Female
  Weight: 65 kg

DRUGS (2)
  1. LEVOFLOXACIN (NON-SPECIFIC) [Suspect]
     Active Substance: LEVOFLOXACIN
     Indication: URINARY TRACT INFECTION
     Dosage: 1 DAILY FOR 5 DAYS
     Dates: start: 201812, end: 201812
  2. ETHINYLESTRADIOL/GESTODENE [Suspect]
     Active Substance: ETHINYL ESTRADIOL\GESTODENE
     Route: 048
     Dates: start: 20180710

REACTIONS (3)
  - Ectopic pregnancy [Unknown]
  - Pregnancy on contraceptive [Unknown]
  - Drug interaction [Unknown]

NARRATIVE: CASE EVENT DATE: 201901
